FAERS Safety Report 8769512 (Version 3)
Quarter: 2013Q1

REPORT INFORMATION
  Report Type: Spontaneous
  Country: US (occurrence: US)
  Receive Date: 20120905
  Receipt Date: 20130206
  Transmission Date: 20140127
  Serious: Yes (Hospitalization, Disabling, Other)
  Sender: FDA-Public Use
  Company Number: US-009507513-1205USA00047

PATIENT
  Sex: Female
  Weight: 60.54 kg

DRUGS (6)
  1. FOSAMAX [Suspect]
     Indication: SENILE OSTEOPOROSIS
     Dosage: 70 MG, QW
     Route: 048
     Dates: start: 1999, end: 20120129
  2. FOSAMAX [Suspect]
     Indication: SENILE OSTEOPOROSIS
     Dosage: 70 MG, QW
     Route: 048
  3. FOSAMAX PLUS D [Suspect]
     Indication: SENILE OSTEOPOROSIS
     Dosage: 70 MG, QW
     Route: 048
  4. ELAVIL [Concomitant]
     Indication: FIBROMYALGIA
     Dosage: 10 MG, HS
     Route: 048
  5. ZANAFLEX [Concomitant]
     Indication: FIBROMYALGIA
  6. LYRICA [Concomitant]
     Indication: FIBROMYALGIA
     Dosage: 75-100
     Route: 048
     Dates: start: 20080821

REACTIONS (54)
  - Open reduction of fracture [Unknown]
  - Convulsion [Unknown]
  - Biopsy breast [Unknown]
  - Low turnover osteopathy [Unknown]
  - Stress fracture [Unknown]
  - Femur fracture [Unknown]
  - Foot fracture [Unknown]
  - Unevaluable event [Unknown]
  - Rib fracture [Unknown]
  - Intervertebral disc protrusion [Unknown]
  - Toxicity to various agents [Unknown]
  - Dyspnoea [Unknown]
  - Chills [Unknown]
  - Dry mouth [Unknown]
  - Osteoarthritis [Unknown]
  - Nodal osteoarthritis [Unknown]
  - Soft tissue disorder [Unknown]
  - Cervical radiculopathy [Unknown]
  - Condition aggravated [Unknown]
  - Fatigue [Unknown]
  - Convulsive threshold lowered [Unknown]
  - Spinal osteoarthritis [Unknown]
  - Dermatitis contact [Unknown]
  - Cellulitis [Unknown]
  - Scar excision [Unknown]
  - Osteopenia [Unknown]
  - Dermatitis contact [Unknown]
  - Undifferentiated connective tissue disease [Unknown]
  - Adverse event [Unknown]
  - Sjogren^s syndrome [Unknown]
  - Raynaud^s phenomenon [Unknown]
  - Acne [Unknown]
  - Acne [Unknown]
  - Seborrhoeic keratosis [Unknown]
  - Campbell de Morgan spots [Unknown]
  - Seborrhoeic keratosis [Unknown]
  - Intervertebral disc disorder [Unknown]
  - Intervertebral disc protrusion [Unknown]
  - Hypertrophy [Unknown]
  - Facet joint syndrome [Unknown]
  - Vertebral foraminal stenosis [Unknown]
  - Dysplastic naevus [Unknown]
  - Drug dependence [Unknown]
  - Seborrhoeic keratosis [Unknown]
  - Fall [Unknown]
  - Gait disturbance [Unknown]
  - Arthralgia [Unknown]
  - Pain in jaw [Unknown]
  - Local swelling [Unknown]
  - Alopecia [Unknown]
  - Dizziness [Unknown]
  - Back pain [Unknown]
  - Fibrocystic breast disease [Unknown]
  - Adenoma benign [Unknown]
